FAERS Safety Report 6289221-3 (Version None)
Quarter: 2009Q3

REPORT INFORMATION
  Report Type: 
  Country: None (occurrence: None)
  Receive Date: 20090729
  Receipt Date: 20090729
  Transmission Date: 20100115
  Serious: No
  Sender: FDA-Public Use
  Company Number: None

PATIENT
  Age: 40 Year
  Sex: Male
  Weight: 74.8435 kg

DRUGS (1)
  1. CIPROFLOXACIN HCL [Suspect]
     Indication: GASTROINTESTINAL INFECTION
     Dosage: 500 MG 2X PER DAY FOR 10 PO
     Route: 048
     Dates: start: 20090711, end: 20090717

REACTIONS (5)
  - ACTIVITIES OF DAILY LIVING IMPAIRED [None]
  - GAIT DISTURBANCE [None]
  - INSOMNIA [None]
  - JOINT SWELLING [None]
  - PAIN [None]
